FAERS Safety Report 22133379 (Version 2)
Quarter: 2023Q4

REPORT INFORMATION
  Report Type: Spontaneous
  Country: US (occurrence: US)
  Receive Date: 20230324
  Receipt Date: 20231117
  Transmission Date: 20240109
  Serious: Yes (Other)
  Sender: FDA-Public Use
  Company Number: US-TEVA-2023-US-2865860

PATIENT
  Age: 75 Year
  Sex: Male

DRUGS (3)
  1. AJOVY [Interacting]
     Active Substance: FREMANEZUMAB-VFRM
     Indication: Product used for unknown indication
     Dosage: 225/1.5 MG/ML
     Route: 065
  2. AJOVY [Interacting]
     Active Substance: FREMANEZUMAB-VFRM
  3. PREGABALIN [Interacting]
     Active Substance: PREGABALIN
     Indication: Carpal tunnel syndrome
     Route: 065
     Dates: start: 2023

REACTIONS (7)
  - Limb operation [Unknown]
  - Carpal tunnel syndrome [Recovered/Resolved]
  - Drug ineffective [Unknown]
  - Pain [Recovered/Resolved]
  - Erythema [Recovered/Resolved]
  - Rash [Recovered/Resolved]
  - Drug interaction [Unknown]

NARRATIVE: CASE EVENT DATE: 20230101
